FAERS Safety Report 15132318 (Version 1)
Quarter: 2018Q4

REPORT INFORMATION
  Report Type: Spontaneous
  Country: US (occurrence: US)
  Receive Date: 20180711
  Receipt Date: 20180711
  Transmission Date: 20190204
  Serious: Yes (Hospitalization)
  Sender: FDA-Public Use
  Company Number: US-THE PROACTIV LLC-2051841

PATIENT
  Sex: Female

DRUGS (6)
  1. PROACTIVPLUS SKIN SMOOTHING EXFOLIATOR [Suspect]
     Active Substance: BENZOYL PEROXIDE
     Indication: PRODUCT USED FOR UNKNOWN INDICATION
     Route: 061
  2. PROACTIV SKIN CLEARING WATER [Suspect]
     Active Substance: SALICYLIC ACID
     Route: 061
  3. PROACTIV PLUS PORE TARGETING TREATMENT [Suspect]
     Active Substance: BENZOYL PEROXIDE
     Route: 061
  4. PROACTIV MARK CORRECTING PADS [Suspect]
     Active Substance: GLYCOLIC ACID\SALICYLIC ACID
     Route: 061
  5. PROACTIV PLUS COMPLEXION PERFECTING HYDRATOR [Suspect]
     Active Substance: SALICYLIC ACID
     Route: 061
  6. PROACTIV EYE BRIGHTENING SERUM [Suspect]
     Active Substance: COSMETICS
     Route: 061

REACTIONS (5)
  - Erythema [Unknown]
  - Skin fragility [Unknown]
  - Swelling [Unknown]
  - Hypersensitivity [Unknown]
  - Swelling face [Unknown]
